FAERS Safety Report 8587494-5 (Version None)
Quarter: 2012Q3

REPORT INFORMATION
  Report Type: 
  Country: None (occurrence: None)
  Receive Date: 20120810
  Receipt Date: 20100926
  Transmission Date: 20120928
  Serious: Yes (Other)
  Sender: FDA-Public Use
  Company Number: CO-PFIZER INC-2012193604

PATIENT
  Age: 64 Year
  Sex: Female

DRUGS (6)
  1. GLIBENCLAMIDE [Concomitant]
     Dosage: 5 MG, 4X/DAY
  2. GEMFIBROZIL [Concomitant]
     Dosage: 600 MG, 2X/DAY
  3. LIPITOR [Suspect]
     Dosage: 20 MG, EVERY 24 HOURS
  4. ACETYLSALICYLIC ACID [Concomitant]
     Dosage: 100 MG, 1X/DAY
  5. LOSARTAN [Concomitant]
     Dosage: 50 MG, EVERY 12 HOURS
  6. METFORMIN [Concomitant]
     Dosage: 850 MG, 4X/DAY

REACTIONS (5)
  - POLYDIPSIA [None]
  - PROTEINURIA [None]
  - POLYURIA [None]
  - ISCHAEMIC CARDIOMYOPATHY [None]
  - HYPERPHAGIA [None]
